FAERS Safety Report 23283489 (Version 2)
Quarter: 2025Q2

REPORT INFORMATION
  Report Type: Spontaneous
  Country: NL (occurrence: NL)
  Receive Date: 20231211
  Receipt Date: 20250620
  Transmission Date: 20250717
  Serious: Yes (Other)
  Sender: MYLAN
  Company Number: NL-AUROBINDO-AUR-APL-2023-012704

PATIENT
  Age: 73 Year
  Sex: Female

DRUGS (16)
  1. CITALOPRAM [Interacting]
     Active Substance: CITALOPRAM
     Indication: Depression
     Dosage: 20 MILLIGRAM, QD (ONCE A DAY)
     Route: 065
  2. CITALOPRAM [Interacting]
     Active Substance: CITALOPRAM
     Dosage: 20 MILLIGRAM, QD (ONCE A DAY)
  3. CITALOPRAM [Interacting]
     Active Substance: CITALOPRAM
     Dosage: 20 MILLIGRAM, QD (ONCE A DAY)
  4. CITALOPRAM [Interacting]
     Active Substance: CITALOPRAM
     Dosage: 20 MILLIGRAM, QD (ONCE A DAY)
     Route: 065
  5. CITALOPRAM [Interacting]
     Active Substance: CITALOPRAM
     Route: 065
  6. CITALOPRAM [Interacting]
     Active Substance: CITALOPRAM
  7. CITALOPRAM [Interacting]
     Active Substance: CITALOPRAM
  8. CITALOPRAM [Interacting]
     Active Substance: CITALOPRAM
     Route: 065
  9. ATORVASTATIN [Interacting]
     Active Substance: ATORVASTATIN
     Indication: Blood cholesterol increased
     Dosage: 40 MILLIGRAM, QD (40 MILLIGRAM, DAILY)
     Route: 065
  10. ATORVASTATIN [Interacting]
     Active Substance: ATORVASTATIN
     Indication: Hypercholesterolaemia
     Dosage: 40 MILLIGRAM, QD (40 MILLIGRAM, DAILY)
  11. ATORVASTATIN [Interacting]
     Active Substance: ATORVASTATIN
     Dosage: 40 MILLIGRAM, QD (40 MILLIGRAM, DAILY)
  12. ATORVASTATIN [Interacting]
     Active Substance: ATORVASTATIN
     Dosage: 40 MILLIGRAM, QD (40 MILLIGRAM, DAILY)
     Route: 065
  13. ATORVASTATIN [Interacting]
     Active Substance: ATORVASTATIN
     Dosage: 20 MILLIGRAM, QD (20 MILLIGRAM, DAILY)
     Route: 065
  14. ATORVASTATIN [Interacting]
     Active Substance: ATORVASTATIN
     Dosage: 20 MILLIGRAM, QD (20 MILLIGRAM, DAILY)
  15. ATORVASTATIN [Interacting]
     Active Substance: ATORVASTATIN
     Dosage: 20 MILLIGRAM, QD (20 MILLIGRAM, DAILY)
  16. ATORVASTATIN [Interacting]
     Active Substance: ATORVASTATIN
     Dosage: 20 MILLIGRAM, QD (20 MILLIGRAM, DAILY)
     Route: 065

REACTIONS (3)
  - Myalgia [Recovered/Resolved]
  - Labelled drug-drug interaction medication error [Unknown]
  - Pain in extremity [Recovered/Resolved]
